FAERS Safety Report 14483760 (Version 1)
Quarter: 2018Q1

REPORT INFORMATION
  Report Type: Spontaneous
  Country: FR (occurrence: FR)
  Receive Date: 20180205
  Receipt Date: 20180205
  Transmission Date: 20180509
  Serious: Yes (Other)
  Sender: FDA-Public Use
  Company Number: FR-MERCK KGAA-2041352

PATIENT
  Age: 58 Year
  Sex: Female
  Weight: 98 kg

DRUGS (1)
  1. NOVOTHYROX [Suspect]
     Active Substance: LEVOTHYROXINE SODIUM
     Indication: THYROIDECTOMY
     Route: 048
     Dates: start: 19970112, end: 20170901

REACTIONS (8)
  - Vertigo [Unknown]
  - Arthralgia [Unknown]
  - Nausea [Unknown]
  - Gastrointestinal pain [Unknown]
  - Fatigue [Unknown]
  - Diffuse alopecia [Unknown]
  - Balance disorder [Unknown]
  - Memory impairment [Unknown]

NARRATIVE: CASE EVENT DATE: 20170701
